FAERS Safety Report 4433428-4 (Version None)
Quarter: 2004Q3

REPORT INFORMATION
  Report Type: 
  Country: None (occurrence: None)
  Receive Date: 20040824
  Receipt Date: 20040811
  Transmission Date: 20050211
  Serious: Yes (Death, Other)
  Sender: FDA-Public Use
  Company Number: 2004054378

PATIENT
  Age: 66 Year
  Sex: Female

DRUGS (2)
  1. CEFOBID [Suspect]
     Indication: ILL-DEFINED DISORDER
     Dosage: (2 GRAM), INTRAVENOUS
     Route: 042
     Dates: start: 20040801, end: 20040801
  2. CEFTRIAXONE [Concomitant]

REACTIONS (5)
  - CHEST PAIN [None]
  - COLD SWEAT [None]
  - EYE DISORDER [None]
  - HYPERHIDROSIS [None]
  - HYPOTENSION [None]
